FAERS Safety Report 8816364 (Version 1)
Quarter: 2012Q4

REPORT INFORMATION
  Report Type: Spontaneous
  Country: US (occurrence: None)
  Receive Date: 20120928
  Receipt Date: 20120928
  Transmission Date: 20130627
  Serious: Yes (Other)
  Sender: FDA-Public Use
  Company Number: None

PATIENT
  Sex: Male
  Weight: 82.56 kg

DRUGS (2)
  1. BENZONATATE [Suspect]
     Dosage: one tab t.i.d.
     Dates: start: 20120827
  2. BENZONATATE [Suspect]
     Dates: start: 20120828

REACTIONS (1)
  - Hiccups [None]
